FAERS Safety Report 7910789-2 (Version None)
Quarter: 2011Q4

REPORT INFORMATION
  Report Type: 
  Country: None (occurrence: None)
  Receive Date: 20111112
  Receipt Date: 20111107
  Transmission Date: 20120403
  Serious: Yes (Death)
  Sender: FDA-Public Use
  Company Number: US-MILLENNIUM PHARMACEUTICALS, INC.-2011-05433

PATIENT

DRUGS (6)
  1. DEXAMETHASONE [Suspect]
     Indication: PRIMARY AMYLOIDOSIS
     Dosage: UNK
  2. ACYCLOVIR [Concomitant]
     Indication: PROPHYLAXIS
  3. OMEPRAZOLE [Concomitant]
     Indication: PROPHYLAXIS
  4. VELCADE [Suspect]
     Indication: PRIMARY AMYLOIDOSIS
     Dosage: 1.3 MG/M2, CYCLIC
  5. FLUCONAZOLE [Concomitant]
     Indication: PROPHYLAXIS
  6. CYCLOPHOSPHAMIDE [Suspect]
     Indication: PRIMARY AMYLOIDOSIS
     Dosage: 300 MG/M2, CYCLIC

REACTIONS (1)
  - SUDDEN DEATH [None]
